FAERS Safety Report 20031846 (Version 1)
Quarter: 2021Q4

REPORT INFORMATION
  Report Type: Report from Study
  Country: AR (occurrence: AR)
  Receive Date: 20211103
  Receipt Date: 20211103
  Transmission Date: 20220303
  Serious: Yes (Other)
  Sender: FDA-Public Use
  Company Number: AR-ABBVIE-21K-007-4057112-00

PATIENT
  Age: 65 Year
  Sex: Female

DRUGS (1)
  1. HUMIRA [Suspect]
     Active Substance: ADALIMUMAB
     Indication: Psoriatic arthropathy
     Route: 058
     Dates: start: 20190927

REACTIONS (13)
  - Gastric polyps [Not Recovered/Not Resolved]
  - Aneurysm [Unknown]
  - Cerebrovascular insufficiency [Unknown]
  - Fall [Unknown]
  - Heart rate decreased [Unknown]
  - Fall [Recovered/Resolved]
  - Back injury [Not Recovered/Not Resolved]
  - Head injury [Not Recovered/Not Resolved]
  - Balance disorder [Not Recovered/Not Resolved]
  - Pruritus [Not Recovered/Not Resolved]
  - Sensory disturbance [Unknown]
  - Thrombosis [Unknown]
  - Drug ineffective [Not Recovered/Not Resolved]

NARRATIVE: CASE EVENT DATE: 20210601
